FAERS Safety Report 19291547 (Version 1)
Quarter: 2021Q2

REPORT INFORMATION
  Report Type: Spontaneous
  Country: CA (occurrence: CA)
  Receive Date: 20210523
  Receipt Date: 20210523
  Transmission Date: 20210717
  Serious: Yes (Other)
  Sender: FDA-Public Use
  Company Number: CA-DRREDDYS-USA/CAN/21/0135647

PATIENT
  Age: 53 Year
  Sex: Female

DRUGS (3)
  1. PROGESTERONE CAPSULES [Suspect]
     Active Substance: PROGESTERONE
     Indication: PRODUCT USED FOR UNKNOWN INDICATION
     Route: 065
  2. ESTRADIOL. [Suspect]
     Active Substance: ESTRADIOL
     Indication: PRODUCT USED FOR UNKNOWN INDICATION
     Route: 065
  3. LEFLUNOMIDE. [Suspect]
     Active Substance: LEFLUNOMIDE
     Indication: PRODUCT USED FOR UNKNOWN INDICATION
     Route: 065

REACTIONS (9)
  - Pain [Unknown]
  - Rheumatoid arthritis [Unknown]
  - Mobility decreased [Unknown]
  - Premature ageing [Unknown]
  - Streptococcal infection [Unknown]
  - Drug ineffective [Unknown]
  - Disease risk factor [Unknown]
  - Memory impairment [Unknown]
  - Weight increased [Unknown]
